FAERS Safety Report 14092320 (Version 1)
Quarter: 2017Q4

REPORT INFORMATION
  Report Type: Spontaneous
  Country: US (occurrence: US)
  Receive Date: 20171015
  Receipt Date: 20171015
  Transmission Date: 20180321
  Serious: No
  Sender: FDA-Public Use
  Company Number: None

PATIENT
  Age: 27 Year
  Weight: 93.15 kg

DRUGS (10)
  1. METFORMIN [Concomitant]
     Active Substance: METFORMIN HYDROCHLORIDE
  2. PRESERVISION [Concomitant]
     Active Substance: MINERALS\VITAMINS
  3. XARELTO [Concomitant]
     Active Substance: RIVAROXABAN
  4. KRILL [Concomitant]
  5. VESICARE [Suspect]
     Active Substance: SOLIFENACIN SUCCINATE
     Indication: BLADDER DISORDER
     Dosage: ?          QUANTITY:1 TABLET(S);?
     Route: 048
     Dates: start: 20170815, end: 20171009
  6. VICTOZA [Concomitant]
     Active Substance: LIRAGLUTIDE
  7. MAGNESIUM GLYCENATE [Concomitant]
  8. AVAPRO [Concomitant]
     Active Substance: IRBESARTAN
  9. LIPITOR [Concomitant]
     Active Substance: ATORVASTATIN CALCIUM
  10. LIPOFLAVOINOIDS [Concomitant]

REACTIONS (2)
  - Dry mouth [None]
  - Mouth ulceration [None]

NARRATIVE: CASE EVENT DATE: 20171009
